FAERS Safety Report 13344056 (Version 4)
Quarter: 2017Q2

REPORT INFORMATION
  Report Type: Report from Study
  Country: IE (occurrence: IE)
  Receive Date: 20170316
  Receipt Date: 20170530
  Transmission Date: 20170830
  Serious: Yes (Hospitalization)
  Sender: FDA-Public Use
  Company Number: IE-B.I. PHARMACEUTICALS,INC./RIDGEFIELD-2017-BI-014400

PATIENT
  Age: 57 Year
  Sex: Female
  Weight: 99.25 kg

DRUGS (19)
  1. NOZINAN [Concomitant]
     Active Substance: LEVOMEPROMAZINE
     Indication: VOMITING
  2. ONDANSETRON [Concomitant]
     Active Substance: ONDANSETRON
     Indication: NAUSEA
     Route: 048
     Dates: start: 20170220
  3. CO-AMOXICLAV [Concomitant]
     Active Substance: AMOXICILLIN\CLAVULANIC ACID
     Indication: URINARY TRACT INFECTION
     Route: 048
     Dates: start: 20170307, end: 20170311
  4. CO-AMOXICLAV [Concomitant]
     Active Substance: AMOXICILLIN\CLAVULANIC ACID
     Route: 048
     Dates: start: 20170322, end: 20170329
  5. NOZINAN [Concomitant]
     Active Substance: LEVOMEPROMAZINE
     Indication: NAUSEA
     Dosage: DAILY DOSE: 6MG PRN
     Route: 048
     Dates: start: 20170327
  6. BLINDED BIBF 1120 [Suspect]
     Active Substance: NINTEDANIB
     Indication: BLADDER CANCER
     Route: 048
     Dates: start: 20170215, end: 20170302
  7. ZOMORPH [Concomitant]
     Active Substance: MORPHINE SULFATE
     Route: 048
     Dates: start: 20170307
  8. ZOMORPH [Concomitant]
     Active Substance: MORPHINE SULFATE
     Indication: PELVIC PAIN
     Route: 048
     Dates: start: 20170115, end: 20170306
  9. OROMORPH [Concomitant]
     Indication: PELVIC PAIN
     Dosage: DAILY DOSE: 10 MG/5 MLS PRN
     Route: 048
     Dates: start: 20170115
  10. AMLODIPINE [Concomitant]
     Active Substance: AMLODIPINE BESYLATE
     Indication: HYPERTENSION
     Route: 048
     Dates: start: 20100615
  11. BLINDED BIBF 1120 [Suspect]
     Active Substance: NINTEDANIB
     Route: 048
     Dates: start: 20170315, end: 20170327
  12. AMITRIPTELENE [Concomitant]
     Indication: INSOMNIA
     Route: 048
     Dates: start: 20170115
  13. GEMCITABINE [Suspect]
     Active Substance: GEMCITABINE\GEMCITABINE HYDROCHLORIDE
     Indication: BLADDER CANCER
     Route: 042
     Dates: start: 20170215, end: 20170322
  14. PARACETAMOL [Concomitant]
     Active Substance: ACETAMINOPHEN
     Indication: PELVIC PAIN
     Dosage: DAILY DOSE: 1 G PRN
     Route: 048
     Dates: start: 20170115
  15. PERINDOPRIL [Concomitant]
     Active Substance: PERINDOPRIL
     Indication: HYPERTENSION
     Route: 048
     Dates: start: 20100615
  16. MEROPENEM. [Concomitant]
     Active Substance: MEROPENEM
     Indication: INFECTION
     Route: 042
     Dates: start: 20170302, end: 20170302
  17. CISPLATIN. [Suspect]
     Active Substance: CISPLATIN
     Indication: BLADDER CANCER
     Route: 042
     Dates: start: 20170215, end: 20170322
  18. GABAPENTIN. [Concomitant]
     Active Substance: GABAPENTIN
     Indication: PELVIC PAIN
     Route: 048
     Dates: start: 20161115
  19. TAZOCIN [Concomitant]
     Active Substance: PIPERACILLIN SODIUM\TAZOBACTAM SODIUM
     Indication: INFECTION
     Route: 042
     Dates: start: 20170302, end: 20170307

REACTIONS (2)
  - Neutropenic sepsis [Recovered/Resolved]
  - Vomiting [Not Recovered/Not Resolved]

NARRATIVE: CASE EVENT DATE: 20170302
